FAERS Safety Report 25929708 (Version 1)
Quarter: 2025Q4

REPORT INFORMATION
  Report Type: Spontaneous
  Country: US (occurrence: None)
  Receive Date: 20251015
  Receipt Date: 20251015
  Transmission Date: 20260118
  Serious: Yes (unspecified)
  Sender: FDA-CTU
  Company Number: None

PATIENT
  Age: 57 Year
  Sex: Male

DRUGS (1)
  1. REVLIMID [Suspect]
     Active Substance: LENALIDOMIDE
     Indication: Plasma cell myeloma
     Dosage: 5MG QOD ORAL?
     Route: 048
     Dates: start: 20181030, end: 20250729

REACTIONS (2)
  - Therapy cessation [None]
  - Diarrhoea [None]

NARRATIVE: CASE EVENT DATE: 20250729
